FAERS Safety Report 10169266 (Version 1)
Quarter: 2014Q2

REPORT INFORMATION
  Report Type: Spontaneous
  Country: GB (occurrence: None)
  Receive Date: 20140509
  Receipt Date: 20140509
  Transmission Date: 20141212
  Serious: Yes (Hospitalization, Other)
  Sender: FDA-Public Use
  Company Number: 2323352

PATIENT
  Age: 55 Year
  Sex: Female

DRUGS (16)
  1. (VINCRISTINE SULFATE) [Suspect]
     Indication: DIFFUSE LARGE B-CELL LYMPHOMA
     Route: 042
     Dates: start: 20100225
  2. (DOXORUBICIN HYDROCHLORIDE) [Suspect]
     Indication: DIFFUSE LARGE B-CELL LYMPHOMA
     Route: 042
     Dates: start: 20100225
  3. BEVACIZUMAB [Suspect]
     Indication: DIFFUSE LARGE B-CELL LYMPHOMA
     Route: 042
     Dates: start: 20100225, end: 20100415
  4. (CYCLOPHOSPHAMIDE) [Suspect]
     Indication: DIFFUSE LARGE B-CELL LYMPHOMA
     Route: 042
  5. RITUXIMAB [Suspect]
     Indication: DIFFUSE LARGE B-CELL LYMPHOMA
     Route: 042
  6. PREDNISOLONE [Suspect]
     Indication: DIFFUSE LARGE B-CELL LYMPHOMA
     Route: 048
     Dates: start: 20100225
  7. (ALLOPURINOL) [Concomitant]
  8. (LANSOPRAZOLE) (LANSOPRAZOLE) [Concomitant]
  9. (CALCIUM ALGINATE) [Concomitant]
  10. (CARBOXYMETHYLCELLULOSE SODIUM) [Concomitant]
  11. (GABAPENTIN) [Concomitant]
  12. (SULFAMETHOXAZOLE W/TRIMETHOPRIM) [Concomitant]
  13. (PARACETAMOL WITH CODEINE PHOSPHATE) [Concomitant]
  14. (HYDROCODONE) [Concomitant]
  15. (IBUPROFEN) [Concomitant]
  16. (RAMIPRIL) [Concomitant]

REACTIONS (6)
  - Left ventricular dysfunction [None]
  - Hypertension [None]
  - Vomiting [None]
  - Diarrhoea [None]
  - Fracture [None]
  - Ejection fraction decreased [None]
